FAERS Safety Report 14301656 (Version 2)
Quarter: 2018Q3

REPORT INFORMATION
  Report Type: Spontaneous
  Country: US (occurrence: US)
  Receive Date: 20171219
  Receipt Date: 20180830
  Transmission Date: 20181010
  Serious: Yes (Hospitalization, Other)
  Sender: FDA-Public Use
  Company Number: US-WEST-WARD PHARMACEUTICALS CORP.-US-H14001-17-04843

PATIENT
  Age: 70 Year
  Sex: Male
  Weight: 45.2 kg

DRUGS (9)
  1. HYDROCODONE [Concomitant]
     Active Substance: HYDROCODONE
     Indication: PAIN
     Route: 065
     Dates: start: 20171002
  2. ATIVAN [Suspect]
     Active Substance: LORAZEPAM
     Indication: CHILLS
     Route: 065
     Dates: start: 20171114
  3. LORTAB [Concomitant]
     Active Substance: ACETAMINOPHEN\HYDROCODONE BITARTRATE
     Indication: PAIN
     Route: 065
     Dates: start: 20170901
  4. MORPHINE SULFATE. [Suspect]
     Active Substance: MORPHINE SULFATE
     Indication: CHILLS
     Route: 065
     Dates: start: 20171114
  5. DEXAMETHASONE. [Concomitant]
     Active Substance: DEXAMETHASONE
     Indication: CACHEXIA
     Route: 065
     Dates: start: 20171017
  6. STEROIDS [Concomitant]
     Active Substance: UNSPECIFIED INGREDIENT
     Indication: CHILLS
     Route: 065
     Dates: start: 20171114
  7. AVELUMAB [Suspect]
     Active Substance: AVELUMAB
     Indication: RENAL CELL CARCINOMA
     Route: 042
     Dates: start: 20171003
  8. AXITINIB [Suspect]
     Active Substance: AXITINIB
     Indication: RENAL CELL CARCINOMA
     Route: 048
     Dates: start: 20171003
  9. LISINOPRIL. [Concomitant]
     Active Substance: LISINOPRIL
     Indication: HYPERTENSION
     Route: 065
     Dates: start: 20171017

REACTIONS (12)
  - Altered state of consciousness [Recovered/Resolved]
  - Confusional state [Recovered/Resolved]
  - Seizure [Unknown]
  - Ataxia [Recovered/Resolved]
  - Urinary incontinence [Unknown]
  - Amnesia [Unknown]
  - Mental status changes [Recovered/Resolved]
  - Off label use [Recovered/Resolved]
  - Hypertension [Unknown]
  - Somnolence [Recovering/Resolving]
  - Feeling abnormal [Unknown]
  - Restlessness [Unknown]

NARRATIVE: CASE EVENT DATE: 201711
